FAERS Safety Report 7756455-8 (Version None)
Quarter: 2011Q3

REPORT INFORMATION
  Report Type: 
  Country: None (occurrence: None)
  Receive Date: 20110901
  Receipt Date: 20110823
  Transmission Date: 20111222
  Serious: Yes (Hospitalization)
  Sender: FDA-Public Use
  Company Number: 2011PROUSA00522

PATIENT
  Age: 73 Year
  Sex: Male
  Weight: 102 kg

DRUGS (5)
  1. LIPITOR [Concomitant]
  2. PROVENGE [Suspect]
     Indication: PROSTATE CANCER METASTATIC
     Dosage: 250 ML, SINGLE, INTRAVENOUS
     Route: 042
     Dates: start: 20110624, end: 20110624
  3. LISINOPRIL [Concomitant]
  4. VITAMAN (ASCORBIC ACID, CALCIUM PANTOTHENATE, CALCIUM PHOSPHATE, ERGOC [Concomitant]
  5. PROVENGE [Suspect]
     Dosage: 250 ML, SINGLE, INTRAVENOUS
     Route: 042
     Dates: start: 20110715, end: 20110715

REACTIONS (2)
  - BLOOD CULTURE POSITIVE [None]
  - STAPHYLOCOCCUS TEST POSITIVE [None]
